FAERS Safety Report 5158887-3 (Version None)
Quarter: 2006Q4

REPORT INFORMATION
  Report Type: 
  Country: None (occurrence: None)
  Receive Date: 20061117
  Receipt Date: 20061110
  Transmission Date: 20070319
  Serious: Yes (Other)
  Sender: FDA-Public Use
  Company Number: 2006139667

PATIENT
  Age: 58 Year
  Sex: Female
  Weight: 72.5755 kg

DRUGS (2)
  1. CADUET [Suspect]
     Indication: BLOOD PRESSURE
     Dosage: 5 MG/10 MG (1 IN 1 D)
     Dates: start: 20061024, end: 20061103
  2. CADUET [Suspect]
     Indication: DIABETES MELLITUS NON-INSULIN-DEPENDENT
     Dosage: 5 MG/10 MG (1 IN 1 D)
     Dates: start: 20061024, end: 20061103

REACTIONS (5)
  - ASTHENIA [None]
  - DYSGRAPHIA [None]
  - JOINT SWELLING [None]
  - OEDEMA PERIPHERAL [None]
  - WEIGHT INCREASED [None]
